FAERS Safety Report 7934586 (Version 2)
Quarter: 2017Q1

REPORT INFORMATION
  Report Type: Report from Study
  Country: CH (occurrence: CH)
  Receive Date: 20110509
  Receipt Date: 20170314
  Transmission Date: 20170429
  Serious: Yes (Death, Hospitalization)
  Sender: FDA-Public Use
  Company Number: CH-BAYER-201038252GPV

PATIENT
  Age: 53 Year
  Sex: Male
  Weight: 84 kg

DRUGS (10)
  1. KAVITAMIN [Concomitant]
     Dosage: 10 MG, QD
     Route: 048
     Dates: end: 20100906
  2. MORPHINE [Concomitant]
     Active Substance: MORPHINE
     Dosage: 10 MG (DAILY DOSE), , ORAL
     Route: 048
  3. SORAFENIB (RAF KINASE INHIBITOR) [Suspect]
     Active Substance: SORAFENIB
     Indication: HEPATOCELLULAR CARCINOMA
     Dosage: 800 MG (DAILY DOSE), , ORAL
     Route: 048
     Dates: start: 20100628, end: 20100821
  4. PROPRANOLOL [Concomitant]
     Active Substance: PROPRANOLOL HYDROCHLORIDE
     Dosage: 80 MG (DAILY DOSE), , ORAL
     Route: 048
  5. PANTOPRAZOLE [Concomitant]
     Active Substance: PANTOPRAZOLE SODIUM
     Dosage: 40 MG (DAILY DOSE), , ORAL
     Route: 048
     Dates: start: 20100525
  6. MOVICOL [Concomitant]
     Active Substance: POLYETHYLENE GLYCOL 3350\POTASSIUM CHLORIDE\SODIUM BICARBONATE\SODIUM CHLORIDE
     Dosage: 1 DF, BID
     Route: 041
     Dates: end: 20100906
  7. ALPRAZOLAM. [Concomitant]
     Active Substance: ALPRAZOLAM
     Dosage: 0.5 MG (DAILY DOSE), , ORAL
     Route: 048
     Dates: start: 20100525, end: 20100827
  8. CITALOPRAM [Suspect]
     Active Substance: CITALOPRAM HYDROBROMIDE
     Dosage: 20 MG, QD
     Route: 048
     Dates: end: 20100906
  9. CIPROXIN [Concomitant]
     Active Substance: CIPROFLOXACIN
     Dosage: 500 MG, QD
     Route: 048
     Dates: end: 20100906
  10. DUPHALAC [Concomitant]
     Active Substance: LACTULOSE
     Dosage: 20 ML, BID
     Route: 048
     Dates: end: 20100906

REACTIONS (8)
  - Confusional state [Recovered/Resolved]
  - Disorientation [Recovered/Resolved]
  - Hyponatraemia [Unknown]
  - Hepatocellular carcinoma [Fatal]
  - Hepatic failure [Fatal]
  - Fatigue [Unknown]
  - Acute kidney injury [Fatal]
  - Inappropriate antidiuretic hormone secretion [Fatal]

NARRATIVE: CASE EVENT DATE: 20100822
